FAERS Safety Report 18540626 (Version 1)
Quarter: 2020Q4

REPORT INFORMATION
  Report Type: Spontaneous
  Country: US (occurrence: US)
  Receive Date: 20201124
  Receipt Date: 20201124
  Transmission Date: 20210114
  Serious: Yes (Hospitalization)
  Sender: FDA-Public Use
  Company Number: None

PATIENT
  Sex: Female

DRUGS (5)
  1. LEVOTHYROXIN TAB 50MCG [Concomitant]
     Dates: start: 20191108
  2. HUMIRA [Suspect]
     Active Substance: ADALIMUMAB
     Indication: ACUTE HAEMORRHAGIC ULCERATIVE COLITIS
     Dosage: ?          OTHER FREQUENCY:EVERY OTHER WEEK;?
     Route: 058
     Dates: start: 20171025
  3. CEFPODOXIME TAB 200MG [Concomitant]
     Dates: start: 20201112
  4. DIVALOPREX TAB 500MG ER [Concomitant]
     Dates: start: 20201016
  5. LORAZEPAM TAB 2MG [Concomitant]
     Dates: start: 20200810

REACTIONS (2)
  - Kidney infection [None]
  - Pneumonia [None]
